FAERS Safety Report 22192812 (Version 1)
Quarter: 2023Q2

REPORT INFORMATION
  Report Type: Spontaneous
  Country: US (occurrence: None)
  Receive Date: 20230410
  Receipt Date: 20230410
  Transmission Date: 20230721
  Serious: Yes (Other)
  Sender: FDA-Public Use
  Company Number: None

PATIENT
  Age: 74 Year
  Sex: Male
  Weight: 72.2 kg

DRUGS (4)
  1. CANGRELOR [Suspect]
     Active Substance: CANGRELOR
     Indication: Stent placement
  2. Aspirin [Concomitant]
     Dates: start: 20220306, end: 20220306
  3. ASPIRIN [Concomitant]
     Active Substance: ASPIRIN
     Dates: start: 20220307, end: 20220321
  4. HEPARIN [Concomitant]
     Active Substance: HEPARIN SODIUM
     Dates: start: 20220306, end: 20230306

REACTIONS (3)
  - Haemorrhagic transformation stroke [None]
  - Vasogenic cerebral oedema [None]
  - Cerebral haemorrhage [None]

NARRATIVE: CASE EVENT DATE: 20220306
